FAERS Safety Report 9460312 (Version 1)
Quarter: 2013Q3

REPORT INFORMATION
  Report Type: Spontaneous
  Country: US (occurrence: US)
  Receive Date: 20130815
  Receipt Date: 20130815
  Transmission Date: 20140515
  Serious: Yes (Hospitalization, Other)
  Sender: FDA-Public Use
  Company Number: US-ELI_LILLY_AND_COMPANY-US201304006313

PATIENT
  Sex: Male

DRUGS (2)
  1. HUMATROPE [Suspect]
     Indication: DWARFISM
     Dosage: 0.4 MG, QD
     Dates: start: 20130301
  2. HUMATROPE [Suspect]
     Indication: PITUITARY TUMOUR
     Dosage: 0.5 MG, QD
     Route: 065
     Dates: end: 201306

REACTIONS (4)
  - Blood sodium decreased [Unknown]
  - Dehydration [Unknown]
  - Local swelling [Unknown]
  - Abdominal distension [Unknown]
